FAERS Safety Report 5646997-3 (Version None)
Quarter: 2008Q1

REPORT INFORMATION
  Report Type: 
  Country: None (occurrence: None)
  Receive Date: 20080303
  Receipt Date: 20080229
  Transmission Date: 20080703
  Serious: Yes (Hospitalization)
  Sender: FDA-Public Use
  Company Number: B0508538A

PATIENT
  Age: 46 Year
  Sex: Female
  Weight: 54 kg

DRUGS (3)
  1. TYKERB [Suspect]
     Dosage: 1250MG PER DAY
     Route: 048
     Dates: start: 20080114, end: 20080130
  2. XELODA [Suspect]
     Dosage: 2000MG PER DAY
     Route: 048
     Dates: start: 20080114, end: 20080130
  3. PREDNISOLONE [Concomitant]
     Indication: METASTASES TO PERITONEUM
     Dosage: 40MG PER DAY
     Route: 048
     Dates: start: 20071121

REACTIONS (4)
  - ABDOMINAL PAIN [None]
  - DIARRHOEA [None]
  - INTESTINAL PERFORATION [None]
  - RECTAL HAEMORRHAGE [None]
